FAERS Safety Report 13669376 (Version 2)
Quarter: 2017Q2

REPORT INFORMATION
  Report Type: Spontaneous
  Country: FR (occurrence: FR)
  Receive Date: 20170620
  Receipt Date: 20170626
  Transmission Date: 20170830
  Serious: Yes (Hospitalization)
  Sender: FDA-Public Use
  Company Number: FR-CHIESI USA INC.-FR-2017CHI000142

PATIENT
  Sex: Male
  Weight: 3.28 kg

DRUGS (1)
  1. CUROSURF [Suspect]
     Active Substance: PORACTANT ALFA
     Indication: RESPIRATORY FAILURE
     Dosage: 200 MG/KG, SINGLE
     Route: 007
     Dates: start: 2017, end: 2017

REACTIONS (4)
  - Neonatal hypoxia [Recovered/Resolved]
  - Bradycardia neonatal [Recovered/Resolved]
  - Neonatal asphyxia [Recovered/Resolved]
  - Malaise [Recovered/Resolved]

NARRATIVE: CASE EVENT DATE: 2017
